FAERS Safety Report 15067142 (Version 1)
Quarter: 2018Q2

REPORT INFORMATION
  Report Type: Spontaneous
  Country: US (occurrence: US)
  Receive Date: 20180606
  Receipt Date: 20180606
  Transmission Date: 20180711
  Serious: Yes (Hospitalization)
  Sender: FDA-Public Use
  Company Number: None

PATIENT
  Age: 29 Year
  Sex: Male

DRUGS (2)
  1. NAPROXEN. [Suspect]
     Active Substance: NAPROXEN
     Indication: PAIN
     Route: 048
     Dates: start: 20180501, end: 20180504
  2. CYCLOBENZAPRINE. [Suspect]
     Active Substance: CYCLOBENZAPRINE
     Indication: PAIN
     Route: 048
     Dates: start: 20180501, end: 20180506

REACTIONS (9)
  - Oral pain [None]
  - Stevens-Johnson syndrome [None]
  - Toxic epidermal necrolysis [None]
  - Herpes simplex [None]
  - Penile exfoliation [None]
  - Drug hypersensitivity [None]
  - Penile ulceration [None]
  - Skin exfoliation [None]
  - Oropharyngeal pain [None]

NARRATIVE: CASE EVENT DATE: 20180503
